FAERS Safety Report 16137210 (Version 3)
Quarter: 2019Q1

REPORT INFORMATION
  Report Type: Spontaneous
  Country: JP (occurrence: JP)
  Receive Date: 20190330
  Receipt Date: 20190330
  Transmission Date: 20190418
  Serious: Yes (Life-Threatening, Hospitalization, Other)
  Sender: FDA-Public Use
  Company Number: PHHY2019JP071216

PATIENT
  Age: 66 Year
  Sex: Female

DRUGS (12)
  1. DEXAMETHASONE. [Suspect]
     Active Substance: DEXAMETHASONE
     Dosage: 20 MG ON DAYS 1, 8,15, AND 22
     Route: 065
  2. LENALIDOMIDE [Suspect]
     Active Substance: LENALIDOMIDE
     Indication: PLASMA CELL MYELOMA
     Dosage: 4 MG ON DAYS 1-21 OF EACH 28-DAYS CYCLE
     Route: 065
  3. CYCLOPHOSPHAMIDE. [Suspect]
     Active Substance: CYCLOPHOSPHAMIDE
     Dosage: 100 MG/BODY ON DAYS 1-4 EACH 21-DAY CYCLE
     Route: 065
  4. MELPHALAN. [Suspect]
     Active Substance: MELPHALAN
     Indication: PLASMA CELL MYELOMA
     Dosage: 200 MG/M2, UNK HIGH-DOSE MELPHALAN
     Route: 065
  5. BORTEZOMIB. [Suspect]
     Active Substance: BORTEZOMIB
     Indication: PLASMA CELL MYELOMA
     Dosage: [CBD THERAPY - ON DAYS 1, 8, 15, AND 22 OF EACH 28-DAY CYCLE]
     Route: 065
  6. VINCRISTINE [Suspect]
     Active Substance: VINCRISTINE
     Indication: PLASMA CELL MYELOMA
     Dosage: 1 MG/BODY ON DAY 1
     Route: 065
  7. PREDNISOLONE. [Suspect]
     Active Substance: PREDNISOLONE
     Indication: PLASMA CELL MYELOMA
     Dosage: 60 MG/M2, CYCLIC
     Route: 065
  8. POMALIDOMIDE [Suspect]
     Active Substance: POMALIDOMIDE
     Indication: PLASMA CELL MYELOMA
     Dosage: 4MG ON DAYS 1-21
     Route: 065
  9. DEXAMETHASONE. [Suspect]
     Active Substance: DEXAMETHASONE
     Dosage: 40 MG ON DAYS 1, 8, 15, AND 22 OF EACH 28-DAYS CYCLE
     Route: 065
  10. DOXORUBICIN [Suspect]
     Active Substance: DOXORUBICIN
     Indication: PLASMA CELL MYELOMA
     Dosage: 25 MG/M2, UNK
     Route: 065
  11. CYCLOPHOSPHAMIDE. [Suspect]
     Active Substance: CYCLOPHOSPHAMIDE
     Indication: PLASMA CELL MYELOMA
     Dosage: 400 MG/BODY [CBD THERAPY - ON DAYS 1, 8, 15, AND 22 OF EACH 28-DAY CYCLE]
     Route: 065
  12. DEXAMETHASONE. [Suspect]
     Active Substance: DEXAMETHASONE
     Indication: PLASMA CELL MYELOMA
     Dosage: [CBD THERAPY - ON DAYS 1, 8, 15, AND 22 OF EACH 28-DAY CYCLE]
     Route: 065

REACTIONS (10)
  - Hepatic function abnormal [Recovered/Resolved]
  - Urethritis [Recovered/Resolved]
  - Adenovirus infection [Recovered/Resolved]
  - Drug ineffective [Recovered/Resolved]
  - Cystitis [Recovered/Resolved]
  - Peritonitis viral [Recovered/Resolved]
  - Cytomegalovirus viraemia [Unknown]
  - Adenoviral haemorrhagic cystitis [Recovered/Resolved]
  - Pathogen resistance [Recovered/Resolved]
  - Urinary tract infection bacterial [Recovered/Resolved]
